FAERS Safety Report 11242635 (Version 1)
Quarter: 2015Q3

REPORT INFORMATION
  Report Type: Spontaneous
  Country: US (occurrence: None)
  Receive Date: 20150701
  Receipt Date: 20150701
  Transmission Date: 20151125
  Serious: Yes (Life-Threatening, Hospitalization)
  Sender: FDA-Public Use
  Company Number: None

PATIENT
  Age: 86 Year
  Sex: Male
  Weight: 67.81 kg

DRUGS (2)
  1. ARGATROBAN. [Suspect]
     Active Substance: ARGATROBAN
     Indication: THROMBOSIS PROPHYLAXIS
     Dosage: 5 ML  PER HOUR  IV
     Route: 042
     Dates: start: 20150415, end: 20150416
  2. LINEZOLID. [Suspect]
     Active Substance: LINEZOLID
     Indication: CELLULITIS
     Route: 042
     Dates: start: 20150401, end: 20150413

REACTIONS (8)
  - Somnolence [None]
  - Thrombocytopenia [None]
  - Cardiogenic shock [None]
  - Haemodynamic instability [None]
  - Septic shock [None]
  - Hypotension [None]
  - Subarachnoid haemorrhage [None]
  - Mental status changes [None]

NARRATIVE: CASE EVENT DATE: 20150414
